FAERS Safety Report 7814504-2 (Version None)
Quarter: 2011Q4

REPORT INFORMATION
  Report Type: 
  Country: None (occurrence: None)
  Receive Date: 20111014
  Receipt Date: 20111014
  Transmission Date: 20120403
  Serious: Yes (Hospitalization)
  Sender: FDA-Public Use
  Company Number: PHHO2008US10974

PATIENT
  Sex: Female
  Weight: 86.2 kg

DRUGS (1)
  1. GILENYA [Suspect]
     Indication: MULTIPLE SCLEROSIS
     Dosage: 1.25 MG, UNK
     Route: 048
     Dates: start: 20080821

REACTIONS (5)
  - BLOOD POTASSIUM DECREASED [None]
  - VOMITING [None]
  - DIARRHOEA [None]
  - NAUSEA [None]
  - GASTROENTERITIS [None]
